FAERS Safety Report 11161846 (Version 1)
Quarter: 2015Q2

REPORT INFORMATION
  Report Type: Spontaneous
  Country: US (occurrence: None)
  Receive Date: 20150603
  Receipt Date: 20150603
  Transmission Date: 20150821
  Serious: Yes (Other)
  Sender: FDA-Public Use
  Company Number: None

PATIENT
  Age: 45 Year
  Sex: Male

DRUGS (1)
  1. MYCOPHENOLIC [Suspect]
     Active Substance: MYCOPHENOLIC ACID
     Indication: HEART TRANSPLANT
     Dosage: ROUTE: ORAL  STRENGTH: 180MG  DOSE FORM: ORAL  FREQUENCY: 1 BID
     Route: 048
     Dates: start: 20141013

REACTIONS (2)
  - Antibody test positive [None]
  - Drug administration error [None]

NARRATIVE: CASE EVENT DATE: 20150601
